FAERS Safety Report 22246876 (Version 1)
Quarter: 2023Q2

REPORT INFORMATION
  Report Type: Spontaneous
  Country: CA (occurrence: CA)
  Receive Date: 20230424
  Receipt Date: 20230424
  Transmission Date: 20230722
  Serious: Yes (Other)
  Sender: FDA-Public Use
  Company Number: CA-JNJFOC-20230310121

PATIENT
  Sex: Female

DRUGS (4)
  1. UNSPECIFIED INGREDIENT [Suspect]
     Active Substance: UNSPECIFIED INGREDIENT
     Indication: Product used for unknown indication
  2. IMBRUVICA [Suspect]
     Active Substance: IBRUTINIB
     Indication: Chronic lymphocytic leukaemia
     Route: 048
  3. OBINUTUZUMAB [Concomitant]
     Active Substance: OBINUTUZUMAB
  4. CHLORAMBUCIL [Concomitant]
     Active Substance: CHLORAMBUCIL

REACTIONS (5)
  - Chronic lymphocytic leukaemia [Unknown]
  - Thrombocytopenia [Unknown]
  - Immune thrombocytopenia [Unknown]
  - Drug intolerance [Unknown]
  - Treatment failure [Unknown]
